FAERS Safety Report 8455224 (Version 4)
Quarter: 2014Q2

REPORT INFORMATION
  Report Type: Report from Study
  Country: DE (occurrence: DE)
  Receive Date: 20120313
  Receipt Date: 20140514
  Transmission Date: 20141212
  Serious: Yes (Hospitalization)
  Sender: FDA-Public Use
  Company Number: DE-UCBSA-052921

PATIENT
  Sex: Female
  Weight: 61 kg

DRUGS (11)
  1. CIMZIA [Suspect]
     Indication: RHEUMATOID ARTHRITIS
     Dosage: SINGLE DOSE:200
     Route: 058
     Dates: start: 20111109
  2. ARAVA [Concomitant]
     Indication: POLYARTHRITIS
     Route: 048
     Dates: start: 20071009
  3. PREDNISOLONE [Concomitant]
     Indication: POLYARTHRITIS
     Dosage: 2.5
  4. PREDNISOLONE [Concomitant]
     Indication: RHEUMATOID ARTHRITIS
     Dosage: 2.5
  5. PREDNISOLONE [Concomitant]
     Indication: POLYARTHRITIS
     Route: 048
     Dates: start: 20071009
  6. PREDNISOLONE [Concomitant]
     Indication: RHEUMATOID ARTHRITIS
     Route: 048
     Dates: start: 20071009
  7. PALEXIA [Concomitant]
     Indication: POLYARTHRITIS
     Route: 048
  8. PALEXIA [Concomitant]
     Indication: RHEUMATOID ARTHRITIS
     Route: 048
  9. PALEXIA [Concomitant]
     Indication: POLYARTHRITIS
     Dates: start: 20111101
  10. PALEXIA [Concomitant]
     Indication: RHEUMATOID ARTHRITIS
     Dates: start: 20111101
  11. AMITRIPTYLINE [Concomitant]
     Indication: RHEUMATOID ARTHRITIS

REACTIONS (1)
  - Coronary artery disease [Not Recovered/Not Resolved]
